FAERS Safety Report 8290287-X (Version None)
Quarter: 2012Q2

REPORT INFORMATION
  Report Type: 
  Country: None (occurrence: None)
  Receive Date: 20120417
  Receipt Date: 20120406
  Transmission Date: 20120825
  Serious: Yes (Other)
  Sender: FDA-Public Use
  Company Number: JP-VERTEX PHARMACEUTICALS INC.-AE-2012-005206

PATIENT
  Age: 55 Year
  Sex: Female

DRUGS (10)
  1. PEGINTERFERON ALFA-2B [Concomitant]
     Indication: HEPATITIS C
     Route: 051
     Dates: start: 20120202
  2. ALLEGRA [Concomitant]
     Route: 048
     Dates: start: 20120315
  3. TELAVIC (TELAPREVIR) [Suspect]
     Indication: HEPATITIS C
     Route: 048
     Dates: start: 20120202, end: 20120315
  4. TELAVIC (TELAPREVIR) [Suspect]
     Route: 048
     Dates: start: 20120315
  5. RIBAVIRIN [Concomitant]
     Indication: HEPATITIS C
     Route: 048
     Dates: start: 20120202, end: 20120216
  6. LANSOPRAZOLE [Concomitant]
     Route: 048
     Dates: start: 20120205
  7. LENDORMIN [Concomitant]
     Route: 048
  8. URSO 250 [Concomitant]
     Route: 048
     Dates: start: 20120209
  9. CMCP [Concomitant]
     Route: 048
  10. RIBAVIRIN [Concomitant]
     Route: 048
     Dates: start: 20120216

REACTIONS (1)
  - PANCYTOPENIA [None]
